FAERS Safety Report 4582846-2 (Version None)
Quarter: 2005Q1

REPORT INFORMATION
  Report Type: 
  Country: None (occurrence: None)
  Receive Date: 20050215
  Receipt Date: 20050203
  Transmission Date: 20050727
  Serious: Yes (Other)
  Sender: FDA-Public Use
  Company Number: JP-ROCHE-394846

PATIENT
  Age: 19 Month
  Sex: Male

DRUGS (1)
  1. TAMIFLU [Suspect]
     Route: 048
     Dates: start: 20050121, end: 20050123

REACTIONS (1)
  - UPPER GASTROINTESTINAL HAEMORRHAGE [None]
